FAERS Safety Report 5933865-2 (Version None)
Quarter: 2008Q4

REPORT INFORMATION
  Report Type: 
  Country: None (occurrence: None)
  Receive Date: 20081024
  Receipt Date: 20081016
  Transmission Date: 20090506
  Serious: Yes (Other)
  Sender: FDA-Public Use
  Company Number: 2008SP021175

PATIENT
  Age: 80 Year
  Sex: Female

DRUGS (4)
  1. MIRALAX [Suspect]
     Indication: DRUG USE FOR UNKNOWN INDICATION
     Dosage: UNK; PO
     Route: 048
  2. LOTREL [Concomitant]
  3. LIPITOR [Concomitant]
  4. ANTIVERT [Concomitant]

REACTIONS (1)
  - HAEMATOCHEZIA [None]
